FAERS Safety Report 9307803 (Version 6)
Quarter: 2015Q2

REPORT INFORMATION
  Report Type: Spontaneous
  Country: US (occurrence: US)
  Receive Date: 20130524
  Receipt Date: 20150415
  Transmission Date: 20150821
  Serious: Yes (Congenital Anomaly, Other)
  Sender: FDA-Public Use
  Company Number: US-PFIZER INC-2013158033

PATIENT
  Sex: Male
  Weight: 3.8 kg

DRUGS (40)
  1. CYCLOBENZAPRINE [Concomitant]
     Active Substance: CYCLOBENZAPRINE
     Dosage: 10 MG, AS NEEDED
     Route: 064
     Dates: start: 20030102
  2. PAXIL [Concomitant]
     Active Substance: PAROXETINE HYDROCHLORIDE
     Dosage: UNK
     Route: 064
  3. EFFEXOR [Suspect]
     Active Substance: VENLAFAXINE HYDROCHLORIDE
     Dosage: 25 MG, DAILY
     Route: 064
     Dates: start: 20021213
  4. METHOCARBAMOL. [Concomitant]
     Active Substance: METHOCARBAMOL
     Indication: MUSCLE SPASMS
     Dosage: 500 MG, ONE OR TWO A DAY AS NEEDED
     Route: 064
     Dates: start: 20030102
  5. PROMETHAZINE [Concomitant]
     Active Substance: PROMETHAZINE\PROMETHAZINE HYDROCHLORIDE
     Dosage: 12.5 MG (25 MG HALF TABLET), 1X/DAY
     Route: 064
     Dates: start: 20030204
  6. HEMOCYTE-F TABLET [Concomitant]
     Dosage: UNK, 3X/DAY
     Route: 064
     Dates: start: 20030524
  7. NASONEX [Concomitant]
     Active Substance: MOMETASONE FUROATE
     Dosage: 50 ?G, DAILY (TWO PUFFS EVERY DAY)
     Route: 064
     Dates: start: 20030611
  8. WELLBUTRIN [Concomitant]
     Active Substance: BUPROPION HYDROCHLORIDE
     Dosage: UNK
     Route: 064
  9. FLONASE [Concomitant]
     Active Substance: FLUTICASONE PROPIONATE
     Indication: RESPIRATORY TRACT CONGESTION
     Dosage: 0.05 % TWO PUFFS, DAILY
     Route: 064
     Dates: start: 200109
  10. EFFEXOR XR [Suspect]
     Active Substance: VENLAFAXINE HYDROCHLORIDE
     Indication: DEPRESSION
     Dosage: 75 MG, 1X/DAY
     Route: 064
     Dates: start: 200107, end: 200210
  11. PRENATAL VITAMINS [Concomitant]
     Active Substance: VITAMINS
     Dosage: UNK
     Route: 064
  12. CEPHALEXIN. [Concomitant]
     Active Substance: CEPHALEXIN
     Indication: INFECTION
     Dosage: 500 MG, 1X/DAY
     Route: 064
     Dates: start: 200301, end: 200405
  13. TYLENOL [Concomitant]
     Active Substance: ACETAMINOPHEN
     Dosage: UNK
     Route: 064
  14. SKELAXIN [Concomitant]
     Active Substance: METAXALONE
     Dosage: 400 MG, DAILY
     Route: 064
     Dates: start: 200205
  15. ZOLOFT [Concomitant]
     Active Substance: SERTRALINE HYDROCHLORIDE
     Dosage: UNK
     Route: 064
  16. TUMS [Concomitant]
     Active Substance: CALCIUM CARBONATE
     Dosage: UNK
     Route: 064
  17. CYCLOBENZAPRINE [Concomitant]
     Active Substance: CYCLOBENZAPRINE
     Dosage: 10 MG, 1X/DAY
     Route: 064
     Dates: start: 200301
  18. KEFLEX [Concomitant]
     Active Substance: CEPHALEXIN
     Indication: PAIN
     Dosage: 500 MG, DAILY
     Route: 064
     Dates: start: 200302
  19. VENLAFAXINE HCL [Suspect]
     Active Substance: VENLAFAXINE HYDROCHLORIDE
     Dosage: UNK
     Route: 064
     Dates: start: 20010710, end: 20021213
  20. CLARITIN [Concomitant]
     Active Substance: LORATADINE
     Dosage: UNK
     Route: 064
  21. CYMBALTA [Concomitant]
     Active Substance: DULOXETINE HYDROCHLORIDE
     Dosage: UNK
     Route: 064
  22. HYDROCODONE [Concomitant]
     Active Substance: HYDROCODONE
     Dosage: UNK
     Route: 064
  23. ROBAXIN [Concomitant]
     Active Substance: METHOCARBAMOL
     Indication: MYALGIA
     Dosage: 500 MG, DAILY
     Route: 064
     Dates: start: 200302
  24. TRAVEL SICKNESS [Concomitant]
     Active Substance: DIMENHYDRINATE
     Indication: MOTION SICKNESS
     Dosage: 25 MG, AS NEEDED
     Route: 064
     Dates: start: 200107
  25. HYDROCODONE/APAP [Concomitant]
     Active Substance: ACETAMINOPHEN\HYDROCODONE
     Dosage: 5/500 MG TABLET DAILY AS NEEDED
     Route: 064
     Dates: start: 20030625
  26. BENADRYL [Concomitant]
     Active Substance: DIPHENHYDRAMINE HYDROCHLORIDE
     Indication: MULTIPLE ALLERGIES
     Dosage: UNK
     Route: 064
  27. HEMOCYTE-F [Concomitant]
     Active Substance: FERROUS FUMARATE\FOLIC ACID
     Dosage: 1 DF, 3X/DAY (ONE TABLET THREE TIMES)
     Route: 064
     Dates: start: 200305, end: 200408
  28. PSEUDOEPHEDRINE [Concomitant]
     Active Substance: PSEUDOEPHEDRINE
     Dosage: 30 MG, AS NEEDED (EVERY ONE  OR TWO HOURS)
     Route: 064
     Dates: start: 200107
  29. EFFEXOR XR [Suspect]
     Active Substance: VENLAFAXINE HYDROCHLORIDE
     Indication: ANXIETY
     Dosage: 37.5 MG, 1X/DAY
     Route: 064
     Dates: start: 200112, end: 200211
  30. EFFEXOR [Suspect]
     Active Substance: VENLAFAXINE HYDROCHLORIDE
     Dosage: UNK
     Route: 064
     Dates: start: 20010710, end: 20021213
  31. NIFEREX-PN FORTE [Concomitant]
     Dosage: 1 DF, 1X/DAY (ONE TABLET A DAY)
     Route: 064
     Dates: start: 20030317
  32. CHLORHEXIDINE [Concomitant]
     Active Substance: CHLORHEXIDINE
     Dosage: 0.12 %, 2X/DAY
     Route: 064
     Dates: start: 200111
  33. BETAMETHASONE [Concomitant]
     Active Substance: BETAMETHASONE
     Dosage: 0.1 %, AS NEEDED
     Route: 064
     Dates: start: 20030410, end: 200401
  34. ADVIL [Concomitant]
     Active Substance: IBUPROFEN
     Indication: PAIN
     Dosage: UNK
     Route: 064
     Dates: start: 200302
  35. LEXAPRO [Concomitant]
     Active Substance: ESCITALOPRAM OXALATE
     Dosage: UNK
     Route: 064
  36. VIIBRYD [Concomitant]
     Active Substance: VILAZODONE HYDROCHLORIDE
     Dosage: UNK
     Route: 064
  37. FLEXERIL [Concomitant]
     Active Substance: CYCLOBENZAPRINE HYDROCHLORIDE
     Indication: MYALGIA
     Dosage: 10 MG, DAILY
     Route: 064
     Dates: start: 200302
  38. GUIATUSS DM [Concomitant]
     Active Substance: DEXTROMETHORPHAN HYDROBROMIDE\GUAIFENESIN
     Indication: RESPIRATORY TRACT CONGESTION
     Dosage: 2 DF (TWO TEA SPOONS), AS NEEDED
     Route: 064
     Dates: start: 200107
  39. MOTRIN [Concomitant]
     Active Substance: IBUPROFEN
     Indication: HYPOAESTHESIA
     Dosage: 600 MG, DAILY
     Route: 064
     Dates: start: 200206
  40. EFFEXOR XR [Suspect]
     Active Substance: VENLAFAXINE HYDROCHLORIDE
     Dosage: 25 MG, 1X/DAY
     Route: 064
     Dates: start: 200112, end: 200212

REACTIONS (6)
  - Bicuspid aortic valve [Unknown]
  - Atrial septal defect [Unknown]
  - Thrombosis [Unknown]
  - Congenital anomaly [Unknown]
  - Maternal exposure during pregnancy [Unknown]
  - Congenital aortic stenosis [Unknown]

NARRATIVE: CASE EVENT DATE: 20030904
